FAERS Safety Report 5519138-0 (Version None)
Quarter: 2007Q4

REPORT INFORMATION
  Report Type: 
  Country: None (occurrence: None)
  Receive Date: 20071114
  Receipt Date: 20071114
  Transmission Date: 20080405
  Serious: Yes (Other)
  Sender: FDA-Public Use
  Company Number: None

PATIENT
  Age: 57 Year
  Sex: Female
  Weight: 74.3899 kg

DRUGS (1)
  1. SIMVASTATIN 20 MG PILL BOX DRUGS [Suspect]
     Indication: BLOOD CHOLESTEROL
     Dosage: 20MG 1 TABLET PER DAY PO
     Route: 048
     Dates: start: 20071025, end: 20071103

REACTIONS (8)
  - ASTHENIA [None]
  - CHEST DISCOMFORT [None]
  - DYSPNOEA [None]
  - INFLUENZA LIKE ILLNESS [None]
  - MUSCULAR WEAKNESS [None]
  - PAIN [None]
  - PAIN IN EXTREMITY [None]
  - PARAESTHESIA [None]
